FAERS Safety Report 22060660 (Version 3)
Quarter: 2023Q2

REPORT INFORMATION
  Report Type: Report from Study
  Country: US (occurrence: US)
  Receive Date: 20230303
  Receipt Date: 20230413
  Transmission Date: 20230722
  Serious: Yes (Hospitalization)
  Sender: FDA-Public Use
  Company Number: US-002147023-NVSC2023US048870

PATIENT
  Sex: Male

DRUGS (1)
  1. KISQALI [Suspect]
     Active Substance: RIBOCICLIB
     Indication: Product used for unknown indication
     Dosage: UNK
     Route: 048
     Dates: end: 20230319

REACTIONS (8)
  - Fall [Unknown]
  - Depression [Unknown]
  - Somnolence [Unknown]
  - Pain [Unknown]
  - Blood creatinine abnormal [Unknown]
  - Confusional state [Unknown]
  - Fluid retention [Unknown]
  - Overdose [Unknown]
